FAERS Safety Report 19134107 (Version 1)
Quarter: 2021Q2

REPORT INFORMATION
  Report Type: Spontaneous
  Country: US (occurrence: US)
  Receive Date: 20210414
  Receipt Date: 20210414
  Transmission Date: 20210717
  Serious: No
  Sender: FDA-Public Use
  Company Number: US-JNJFOC-20210402667

PATIENT
  Age: 60 Year
  Sex: Female
  Weight: 113.4 kg

DRUGS (25)
  1. BENADRYL [Suspect]
     Active Substance: DIPHENHYDRAMINE HYDROCHLORIDE
     Indication: LIP SWELLING
  2. BENADRYL [Suspect]
     Active Substance: DIPHENHYDRAMINE HYDROCHLORIDE
     Indication: PARAESTHESIA ORAL
  3. PEPCID [Suspect]
     Active Substance: FAMOTIDINE
     Indication: PRURITUS
  4. BETAMETHASONE. [Concomitant]
     Active Substance: BETAMETHASONE
     Indication: SWELLING
  5. BETAMETHASONE. [Concomitant]
     Active Substance: BETAMETHASONE
     Indication: LIP SWELLING
  6. PEPCID [Suspect]
     Active Substance: FAMOTIDINE
     Indication: LIP SWELLING
  7. PEPCID [Suspect]
     Active Substance: FAMOTIDINE
     Indication: SWELLING
  8. DECADRON [Concomitant]
     Active Substance: DEXAMETHASONE
     Indication: LIP SWELLING
  9. BENADRYL [Suspect]
     Active Substance: DIPHENHYDRAMINE HYDROCHLORIDE
     Indication: PRURITUS
  10. DECADRON [Concomitant]
     Active Substance: DEXAMETHASONE
     Indication: ALLERGY TO VACCINE
     Route: 065
  11. DECADRON [Concomitant]
     Active Substance: DEXAMETHASONE
     Indication: SWELLING
  12. PEPCID [Suspect]
     Active Substance: FAMOTIDINE
     Indication: ALLERGY TO VACCINE
     Route: 065
     Dates: start: 20210305
  13. DECADRON [Concomitant]
     Active Substance: DEXAMETHASONE
     Indication: PRURITUS
  14. DECADRON [Concomitant]
     Active Substance: DEXAMETHASONE
     Indication: RASH
  15. BETAMETHASONE. [Concomitant]
     Active Substance: BETAMETHASONE
     Indication: ALLERGY TO VACCINE
     Route: 065
  16. BETAMETHASONE. [Concomitant]
     Active Substance: BETAMETHASONE
     Indication: PARAESTHESIA ORAL
  17. BENADRYL [Suspect]
     Active Substance: DIPHENHYDRAMINE HYDROCHLORIDE
     Indication: ALLERGY TO VACCINE
     Route: 065
     Dates: start: 20210305
  18. PEPCID [Suspect]
     Active Substance: FAMOTIDINE
     Indication: PARAESTHESIA ORAL
  19. COVID?19 VACCINE NOS. [Concomitant]
     Active Substance: COVID-19 VACCINE NOS
     Indication: IMMUNISATION
     Dosage: LEFT ARM
     Route: 065
     Dates: start: 20210305
  20. BETAMETHASONE. [Concomitant]
     Active Substance: BETAMETHASONE
     Indication: RASH
  21. BENADRYL [Suspect]
     Active Substance: DIPHENHYDRAMINE HYDROCHLORIDE
     Indication: SWELLING
  22. DECADRON [Concomitant]
     Active Substance: DEXAMETHASONE
     Indication: PARAESTHESIA ORAL
  23. BETAMETHASONE. [Concomitant]
     Active Substance: BETAMETHASONE
     Indication: PRURITUS
  24. BENADRYL [Suspect]
     Active Substance: DIPHENHYDRAMINE HYDROCHLORIDE
     Indication: RASH
  25. PEPCID [Suspect]
     Active Substance: FAMOTIDINE
     Indication: RASH

REACTIONS (3)
  - Product use in unapproved indication [Recovering/Resolving]
  - Therapeutic response unexpected [Unknown]
  - Off label use [Recovering/Resolving]

NARRATIVE: CASE EVENT DATE: 20210305
